FAERS Safety Report 6708353-6 (Version None)
Quarter: 2010Q2

REPORT INFORMATION
  Report Type: 
  Country: None (occurrence: None)
  Receive Date: 20100503
  Receipt Date: 20091109
  Transmission Date: 20101027
  Serious: No
  Sender: FDA-Public Use
  Company Number: US-ASTRAZENECA-2009SE25420

PATIENT
  Age: 58 Year
  Sex: Female
  Weight: 82.1 kg

DRUGS (5)
  1. NEXIUM [Suspect]
     Indication: GASTROOESOPHAGEAL REFLUX DISEASE
     Route: 048
     Dates: start: 20091001
  2. OMEPRAZOLE [Suspect]
  3. MULTI-VITAMIN [Concomitant]
  4. CALCIUM [Concomitant]
  5. GAVISCON ANTACID [Concomitant]

REACTIONS (4)
  - CHEST DISCOMFORT [None]
  - DRUG INEFFECTIVE [None]
  - HIATUS HERNIA [None]
  - THROAT IRRITATION [None]
